FAERS Safety Report 6259416-3 (Version None)
Quarter: 2009Q3

REPORT INFORMATION
  Report Type: 
  Country: None (occurrence: None)
  Receive Date: 20090706
  Receipt Date: 20090619
  Transmission Date: 20100115
  Serious: Yes (Other)
  Sender: FDA-Public Use
  Company Number: US-JNJFOC-200906 07706

PATIENT
  Age: 79 Year
  Sex: Female

DRUGS (1)
  1. DECITABINE (DECITABINE) LYOPHILIZED POWDER [Suspect]
     Indication: MYELODYSPLASTIC SYNDROME
     Dosage: INTRAVENOUS
     Route: 042
     Dates: start: 20061201

REACTIONS (2)
  - PULMONARY EMBOLISM [None]
  - THROMBOCYTOSIS [None]
